FAERS Safety Report 6215321-X (Version None)
Quarter: 2009Q2

REPORT INFORMATION
  Report Type: 
  Country: None (occurrence: None)
  Receive Date: 20090604
  Receipt Date: 20090526
  Transmission Date: 20091009
  Serious: Yes (Other)
  Sender: FDA-Public Use
  Company Number: PHHY2009AT20887

PATIENT
  Age: 86 Year
  Sex: Female

DRUGS (3)
  1. EXELON [Suspect]
     Dosage: UNK
     Route: 062
     Dates: start: 20081020, end: 20081101
  2. EBIXA [Concomitant]
     Dosage: UNK
     Dates: start: 20060501
  3. ARICEPT [Concomitant]
     Dosage: 5 MG DAILY
     Dates: start: 20060501, end: 20080901

REACTIONS (4)
  - AGITATION [None]
  - DRUG INTOLERANCE [None]
  - NIGHTMARE [None]
  - SLEEP DISORDER [None]
